FAERS Safety Report 21064740 (Version 1)
Quarter: 2022Q3

REPORT INFORMATION
  Report Type: Spontaneous
  Country: US (occurrence: None)
  Receive Date: 20220710
  Receipt Date: 20220710
  Transmission Date: 20221027
  Serious: Yes (Disabling)
  Sender: FDA-Public Use
  Company Number: None

PATIENT
  Age: 44 Year
  Sex: Male
  Weight: 85.5 kg

DRUGS (1)
  1. GABAPENTIN [Suspect]
     Active Substance: GABAPENTIN
     Indication: Anxiety
     Dosage: FREQUENCY : 3 TIMES A DAY;?
     Route: 048
     Dates: start: 20200701

REACTIONS (5)
  - Condition aggravated [None]
  - Affective disorder [None]
  - Withdrawal syndrome [None]
  - Cognitive disorder [None]
  - Memory impairment [None]

NARRATIVE: CASE EVENT DATE: 20220710
